FAERS Safety Report 4419462-9 (Version None)
Quarter: 2004Q3

REPORT INFORMATION
  Report Type: 
  Country: None (occurrence: None)
  Receive Date: 20040809
  Receipt Date: 20040127
  Transmission Date: 20050211
  Serious: No
  Sender: FDA-Public Use
  Company Number: US-GLAXOSMITHKLINE-A0496696A

PATIENT
  Age: 35 Year
  Sex: Female

DRUGS (2)
  1. PAROXETINE HCL [Suspect]
     Indication: PANIC ATTACK
     Dosage: 20MG UNKNOWN
     Route: 048
     Dates: start: 20030101
  2. HERBAL SUPPLEMENT [Concomitant]

REACTIONS (1)
  - DRUG INEFFECTIVE [None]
